FAERS Safety Report 5977310-X (Version None)
Quarter: 2008Q4

REPORT INFORMATION
  Report Type: 
  Country: None (occurrence: None)
  Receive Date: 20081203
  Receipt Date: 20081120
  Transmission Date: 20090506
  Serious: Yes (Other)
  Sender: FDA-Public Use
  Company Number: PHHY2008FR29406

PATIENT
  Age: 59 Year
  Sex: Male

DRUGS (9)
  1. TAREG [Suspect]
     Indication: HYPERTENSION
     Dosage: 80 MG, QD
     Dates: start: 20080301
  2. PLAVIX [Concomitant]
  3. KARDEGIC [Concomitant]
  4. TAHOR [Concomitant]
     Dosage: UNK
     Dates: start: 20080801
  5. FRACTAL [Concomitant]
     Dosage: UNK
     Dates: start: 20080901
  6. VERAPAMIL [Concomitant]
  7. ATENOLOL [Concomitant]
  8. NEBILOX [Concomitant]
  9. OMACOR                             /01403701/ [Concomitant]

REACTIONS (2)
  - DEPRESSION [None]
  - FATIGUE [None]
